FAERS Safety Report 21984762 (Version 4)
Quarter: 2024Q2

REPORT INFORMATION
  Report Type: Report from Study
  Country: JP (occurrence: JP)
  Receive Date: 20230213
  Receipt Date: 20240602
  Transmission Date: 20240716
  Serious: Yes (Hospitalization, Other)
  Sender: FDA-Public Use
  Company Number: JP-VIIV HEALTHCARE LIMITED-JP2022JPN076352

PATIENT

DRUGS (10)
  1. DOLUTEGRAVIR SODIUM\LAMIVUDINE [Suspect]
     Active Substance: DOLUTEGRAVIR SODIUM\LAMIVUDINE
     Indication: HIV infection
     Dosage: 1 DF, 1D
     Dates: start: 20200911
  2. Depas [Concomitant]
     Indication: Anxiety disorder
     Dosage: UNK
     Dates: end: 20211018
  3. Depas [Concomitant]
     Indication: Condition aggravated
  4. NITRAZEPAM [Concomitant]
     Active Substance: NITRAZEPAM
     Indication: Anxiety disorder
     Dosage: UNK
     Dates: start: 20211018, end: 20211129
  5. NITRAZEPAM [Concomitant]
     Active Substance: NITRAZEPAM
     Indication: Condition aggravated
  6. TRAZODONE HYDROCHLORIDE [Concomitant]
     Active Substance: TRAZODONE HYDROCHLORIDE
     Indication: Anxiety disorder
     Dosage: UNK
     Dates: start: 20211020
  7. TRAZODONE HYDROCHLORIDE [Concomitant]
     Active Substance: TRAZODONE HYDROCHLORIDE
     Indication: Condition aggravated
  8. DAYVIGO [Concomitant]
     Active Substance: LEMBOREXANT
     Dosage: UNK
     Dates: start: 20211129
  9. CALONAL [Concomitant]
     Active Substance: ACETAMINOPHEN
     Indication: Prophylaxis
     Dosage: UNK
  10. ZOLPIDEM [Concomitant]
     Active Substance: ZOLPIDEM TARTRATE
     Indication: Prophylaxis
     Dosage: UNK
     Dates: start: 20230501, end: 20230510

REACTIONS (4)
  - Anxiety disorder [Recovering/Resolving]
  - Condition aggravated [Recovering/Resolving]
  - Secondary syphilis [Recovered/Resolved]
  - Dizziness [Recovering/Resolving]

NARRATIVE: CASE EVENT DATE: 20220427
